FAERS Safety Report 6732573-8 (Version None)
Quarter: 2010Q2

REPORT INFORMATION
  Report Type: 
  Country: None (occurrence: None)
  Receive Date: 20100519
  Receipt Date: 20100511
  Transmission Date: 20101027
  Serious: Yes (Other)
  Sender: FDA-Public Use
  Company Number: JP-BRISTOL-MYERS SQUIBB COMPANY-15101538

PATIENT
  Age: 57 Year
  Sex: Male

DRUGS (1)
  1. MAXIPIME [Suspect]
     Indication: PYREXIA
     Route: 041
     Dates: start: 20100509, end: 20100509

REACTIONS (1)
  - BLOOD PRESSURE DECREASED [None]
